FAERS Safety Report 17698851 (Version 1)
Quarter: 2020Q2

REPORT INFORMATION
  Report Type: Spontaneous
  Country: TR (occurrence: TR)
  Receive Date: 20200423
  Receipt Date: 20200423
  Transmission Date: 20200714
  Serious: Yes (Hospitalization, Other)
  Sender: FDA-Public Use
  Company Number: NVSC2020TR107760

PATIENT
  Age: 40 Year
  Sex: Female

DRUGS (1)
  1. FINGOLIMOD. [Suspect]
     Active Substance: FINGOLIMOD
     Indication: MULTIPLE SCLEROSIS RELAPSE
     Dosage: UNK
     Route: 065

REACTIONS (2)
  - Left ventricular dysfunction [Recovering/Resolving]
  - Pulmonary oedema [Recovering/Resolving]
